FAERS Safety Report 17984173 (Version 1)
Quarter: 2020Q3

REPORT INFORMATION
  Report Type: Spontaneous
  Country: DE (occurrence: DE)
  Receive Date: 20200706
  Receipt Date: 20200706
  Transmission Date: 20201103
  Serious: Yes (Other)
  Sender: FDA-Public Use
  Company Number: NVSC2020DE186887

PATIENT
  Age: 49 Year
  Sex: Male
  Weight: 82 kg

DRUGS (19)
  1. VINCRISTINE [Suspect]
     Active Substance: VINCRISTINE
     Indication: DIFFUSE LARGE B-CELL LYMPHOMA
     Dosage: UNK (1ST LINE THERAPY, ACCORDING TO R?CHOP REGIMEN, 6 CYCLES)
     Route: 065
     Dates: start: 201812, end: 201904
  2. CYTARABINE. [Suspect]
     Active Substance: CYTARABINE
     Indication: DIFFUSE LARGE B-CELL LYMPHOMA
     Dosage: UNK (2ND LINE THERAPY, ACCORDING TO R?DHAP REGIMEN, 4 CYCLES)
     Route: 065
     Dates: start: 201907, end: 201909
  3. CISPLATIN. [Suspect]
     Active Substance: CISPLATIN
     Dosage: UNK (2ND LINE THERAPY, ACCORDING TO R?DHAP REGIMEN, 4 CYCLES)
     Route: 065
     Dates: start: 201909
  4. DEXAMETHASONE. [Suspect]
     Active Substance: DEXAMETHASONE
     Indication: DIFFUSE LARGE B-CELL LYMPHOMA
     Dosage: 40 MG, UNKNOWN (DAY 1?4 OF A CYCLE OF 21 DAYS)
     Route: 048
     Dates: start: 20190704
  5. CISPLATIN. [Suspect]
     Active Substance: CISPLATIN
     Indication: DIFFUSE LARGE B-CELL LYMPHOMA
     Dosage: 25 MG/M2 (DAY 1?4 OF A CYCLE OF 21 DAYS)
     Route: 042
     Dates: start: 20190704, end: 20190912
  6. CISPLATIN. [Suspect]
     Active Substance: CISPLATIN
     Dosage: UNK (2ND LINE THERAPY, ACCORDING TO R?DHAP REGIMEN, 4 CYCLES)
     Route: 065
     Dates: start: 201907
  7. DOXORUBICIN [Suspect]
     Active Substance: DOXORUBICIN
     Indication: DIFFUSE LARGE B-CELL LYMPHOMA
     Dosage: UNK (1ST LINE THERAPY, ACCORDING TO R?CHOP REGIMEN, 6 CYCLES)
     Route: 065
     Dates: start: 201812
  8. DEXAMETHASONE. [Suspect]
     Active Substance: DEXAMETHASONE
     Dosage: 40 MG, UNKNOWN (DAY 1?4 OF A CYCLE OF 21 DAYS)
     Route: 048
     Dates: start: 20190912
  9. DOXORUBICIN [Suspect]
     Active Substance: DOXORUBICIN
     Dosage: UNK (1ST LINE THERAPY, ACCORDING TO R?CHOP REGIMEN, 6 CYCLES)
     Route: 065
     Dates: start: 201904
  10. CYTARABINE. [Suspect]
     Active Substance: CYTARABINE
     Dosage: UNK (2X2 G/M2, DAY 2 OF A CYCLE OF 21 DAYS)
     Route: 042
     Dates: start: 20190704, end: 20190912
  11. RITUXIMAB. [Suspect]
     Active Substance: RITUXIMAB
     Dosage: UNK
     Route: 065
  12. MABTHERA [Suspect]
     Active Substance: RITUXIMAB
     Indication: DIFFUSE LARGE B-CELL LYMPHOMA
     Dosage: UNK (1ST LINE THERAPY, ACCORDING TO R?CHOP REGIMEN, 6 CYCLES)
     Route: 065
     Dates: start: 201812, end: 201904
  13. MABTHERA [Suspect]
     Active Substance: RITUXIMAB
     Dosage: UNK (2ND LINE THERAPY, ACCORDING TO R?DHAP REGIMEN, 4 CYCLES)
     Route: 065
     Dates: start: 201907, end: 201909
  14. PREDNISOLONE. [Suspect]
     Active Substance: PREDNISOLONE
     Indication: DIFFUSE LARGE B-CELL LYMPHOMA
     Dosage: UNK (1ST LINE THERAPY, ACCORDING TO R?CHOP REGIMEN, 6 CYCLES)
     Route: 065
     Dates: start: 201812, end: 201904
  15. DEXAMETHASONE. [Suspect]
     Active Substance: DEXAMETHASONE
     Indication: DIFFUSE LARGE B-CELL LYMPHOMA
     Dosage: UNK (2ND LINE THERAPY, ACCORDING TO R?DHAP REGIMEN, 4 CYCLES)
     Route: 065
     Dates: start: 201907
  16. CYCLOPHOSPHAMIDE. [Suspect]
     Active Substance: CYCLOPHOSPHAMIDE
     Indication: DIFFUSE LARGE B-CELL LYMPHOMA
     Dosage: UNK (1ST LINE THERAPY, ACCORDING TO R?CHOP REGIMEN, 6 CYCLES)
     Route: 065
     Dates: start: 201812, end: 201904
  17. RITUXIMAB. [Suspect]
     Active Substance: RITUXIMAB
     Indication: DIFFUSE LARGE B-CELL LYMPHOMA
     Dosage: 500 MG (375 MG/M2)
     Route: 042
     Dates: start: 20190704, end: 20190909
  18. DEXAMETHASONE. [Suspect]
     Active Substance: DEXAMETHASONE
     Dosage: UNK (2ND LINE THERAPY, ACCORDING TO R?DHAP REGIMEN, 4 CYCLES)
     Route: 065
     Dates: start: 201909
  19. MABTHERA [Suspect]
     Active Substance: RITUXIMAB
     Dosage: 1400 MG (2ND LINE THERAPY, ACCORDING TO R?DHAP REGIMEN)
     Route: 058
     Dates: start: 20190819

REACTIONS (2)
  - Anaemia [Recovered/Resolved]
  - Leukopenia [Recovered/Resolved]

NARRATIVE: CASE EVENT DATE: 20190909
